FAERS Safety Report 14309405 (Version 2)
Quarter: 2018Q2

REPORT INFORMATION
  Report Type: Spontaneous
  Country: IT (occurrence: IT)
  Receive Date: 20171220
  Receipt Date: 20180409
  Transmission Date: 20180711
  Serious: Yes (Life-Threatening)
  Sender: FDA-Public Use
  Company Number: IT-TEVA-2017-IT-832554

PATIENT
  Age: 71 Year
  Sex: Female

DRUGS (1)
  1. LETROZOLE 2.5 MG FILM-COATED TABLETS [Suspect]
     Active Substance: LETROZOLE
     Route: 048
     Dates: start: 20170901, end: 20170910

REACTIONS (1)
  - Confusional state [Recovered/Resolved]

NARRATIVE: CASE EVENT DATE: 20170901
